FAERS Safety Report 7794820-3 (Version None)
Quarter: 2011Q4

REPORT INFORMATION
  Report Type: 
  Country: None (occurrence: None)
  Receive Date: 20111004
  Receipt Date: 20110922
  Transmission Date: 20120403
  Serious: Yes (Other)
  Sender: FDA-Public Use
  Company Number: US-CELGENEUS-163-21880-11061308

PATIENT
  Sex: Male
  Weight: 48.396 kg

DRUGS (15)
  1. METOPROLOL TARTRATE [Concomitant]
     Dosage: 50 MILLIGRAM
     Route: 048
  2. CALCIUM CARBONATE [Concomitant]
     Route: 065
  3. CENTRUM SILVER [Concomitant]
     Route: 065
  4. VITAMIN B COMPLEX CAP [Concomitant]
     Route: 065
  5. HYDROCODONE [Concomitant]
     Indication: PAIN
     Route: 065
  6. JANUVIA [Concomitant]
     Dosage: 1 PER DAY
     Route: 065
  7. ZOCOR [Concomitant]
     Dosage: 40 MILLIGRAM
     Route: 065
  8. PLENDIL [Concomitant]
     Dosage: 5 MILLIGRAM
     Route: 065
  9. REVLIMID [Suspect]
     Indication: MYELODYSPLASTIC SYNDROME
     Dosage: 10 MILLIGRAM
     Route: 048
     Dates: start: 20090901
  10. REVLIMID [Suspect]
     Dosage: 10 MILLIGRAM
     Route: 048
     Dates: start: 20110601, end: 20110830
  11. GLUCOPHAG [Concomitant]
     Dosage: 1000 MILLIGRAM
     Route: 048
  12. PRINIVIL [Concomitant]
     Dosage: 20 MILLIGRAM
     Route: 048
  13. REVLIMID [Suspect]
     Dosage: 25 MILLIGRAM
     Route: 048
     Dates: start: 20110401
  14. FISH OIL [Concomitant]
     Route: 065
  15. ADVAIR DISKUS 100/50 [Concomitant]
     Route: 055

REACTIONS (2)
  - PANCYTOPENIA [None]
  - THYROID CANCER METASTATIC [None]
